FAERS Safety Report 24426722 (Version 1)
Quarter: 2024Q4

REPORT INFORMATION
  Report Type: Spontaneous
  Country: US (occurrence: US)
  Receive Date: 20241011
  Receipt Date: 20241011
  Transmission Date: 20250115
  Serious: Yes (Hospitalization, Other)
  Sender: DR REDDYS
  Company Number: US-DRL-USA-LIT/USA/24/0014781

PATIENT
  Age: 68 Year
  Sex: Male

DRUGS (1)
  1. PHYTONADIONE [Suspect]
     Active Substance: PHYTONADIONE
     Indication: Procoagulant therapy

REACTIONS (5)
  - Anaphylactoid reaction [Recovering/Resolving]
  - Loss of consciousness [Recovered/Resolved]
  - Electrocardiogram ST segment elevation [Recovering/Resolving]
  - Cerebral hypoperfusion [Recovering/Resolving]
  - Hypotension [Recovering/Resolving]
